FAERS Safety Report 5015745-2 (Version None)
Quarter: 2006Q2

REPORT INFORMATION
  Report Type: 
  Country: None (occurrence: None)
  Receive Date: 20060601
  Receipt Date: 20060425
  Transmission Date: 20061013
  Serious: Yes (Hospitalization)
  Sender: FDA-Public Use
  Company Number: JP-BRISTOL-MYERS SQUIBB COMPANY-13358312

PATIENT
  Sex: Female

DRUGS (9)
  1. TAXOL [Suspect]
     Indication: BREAST CANCER
     Route: 041
     Dates: start: 20060418, end: 20060418
  2. CEFAMEZIN [Suspect]
     Indication: INFECTION PROPHYLAXIS
     Route: 051
     Dates: start: 20060330, end: 20060330
  3. DECADRON SRC [Concomitant]
     Route: 041
     Dates: start: 20060418, end: 20060418
  4. KYTRIL [Concomitant]
     Route: 041
     Dates: start: 20060418, end: 20060418
  5. ZANTAC [Concomitant]
     Route: 042
     Dates: start: 20060418, end: 20060418
  6. VENA [Concomitant]
     Route: 048
     Dates: start: 20060418, end: 20060418
  7. VOLTAREN [Concomitant]
     Route: 054
     Dates: start: 20060418, end: 20060418
  8. MEIACT [Concomitant]
     Route: 048
     Dates: start: 20060331, end: 20060404
  9. MINOCYCLINE HCL [Concomitant]
     Route: 048
     Dates: start: 20060406, end: 20060410

REACTIONS (1)
  - ENTEROCOLITIS HAEMORRHAGIC [None]
